FAERS Safety Report 5256280-6 (Version None)
Quarter: 2007Q1

REPORT INFORMATION
  Report Type: 
  Country: None (occurrence: None)
  Receive Date: 20070306
  Receipt Date: 20070221
  Transmission Date: 20070707
  Serious: Yes (Hospitalization, Other)
  Sender: FDA-Public Use
  Company Number: PHBS2007IN03528

PATIENT
  Age: 52 Year
  Sex: Male

DRUGS (3)
  1. CYCLOSPORINE [Suspect]
     Indication: RENAL TRANSPLANT
     Dosage: 175 MG/DAY
     Route: 048
  2. PREDNISOLONE [Suspect]
     Indication: RENAL TRANSPLANT
     Dosage: 10 MG/DAY
     Route: 048
  3. CYCLOPHOSPHAMIDE [Suspect]
     Indication: RENAL TRANSPLANT
     Dosage: 50 MG/DAY
     Route: 048

REACTIONS (8)
  - CARCINOMA IN SITU OF EYE [None]
  - CD4 LYMPHOCYTES DECREASED [None]
  - CYTOMEGALOVIRUS CHORIORETINITIS [None]
  - HUMAN PAPILLOMA VIRUS TEST POSITIVE [None]
  - MALIGNANT TUMOUR EXCISION [None]
  - NODULE [None]
  - PAPILLOMA EXCISION [None]
  - SKIN PAPILLOMA [None]
